FAERS Safety Report 5985964-7 (Version None)
Quarter: 2008Q4

REPORT INFORMATION
  Report Type: 
  Country: None (occurrence: None)
  Receive Date: 20081205
  Receipt Date: 20081205
  Transmission Date: 20090506
  Serious: Yes (Death, Hospitalization)
  Sender: FDA-Public Use
  Company Number: None

PATIENT
  Age: 51 Year
  Sex: Female
  Weight: 65 kg

DRUGS (13)
  1. TRUVADA [Suspect]
     Indication: HIV INFECTION
     Dosage: 200/300 MG QD PO
     Route: 048
     Dates: start: 20080612, end: 20080925
  2. LOPINAVIR/RITONAVIR (ALUVIA) [Suspect]
     Indication: HIV INFECTION
     Dosage: 400/100 MG BD PO
     Route: 048
     Dates: start: 20080612, end: 20080925
  3. MEROPENEM [Concomitant]
  4. METRONIDAZOLE [Concomitant]
  5. LOPERAMIDE HCL [Concomitant]
  6. FLUCONAZOLE [Concomitant]
  7. OMEPRAZOLE [Concomitant]
  8. ESOMEPRAZOLE MAGNESIUM [Concomitant]
  9. METOCLORPRAMIDE [Concomitant]
  10. ACYCLOVIR [Concomitant]
  11. FERROUS SULFATE TAB [Concomitant]
  12. FOLATE [Concomitant]
  13. ACETAMINOPHEN [Concomitant]

REACTIONS (22)
  - ANAEMIA [None]
  - ANOREXIA [None]
  - BLOOD POTASSIUM INCREASED [None]
  - BLOOD SODIUM DECREASED [None]
  - CONFUSIONAL STATE [None]
  - DEHYDRATION [None]
  - DIARRHOEA [None]
  - DIPLOPIA [None]
  - ESCHERICHIA URINARY TRACT INFECTION [None]
  - GASTRODUODENITIS [None]
  - GASTROENTERITIS [None]
  - GENERAL PHYSICAL HEALTH DETERIORATION [None]
  - INCOHERENT [None]
  - LETHARGY [None]
  - LIVER DISORDER [None]
  - RENAL DISORDER [None]
  - RENAL FAILURE ACUTE [None]
  - RENAL PAPILLARY NECROSIS [None]
  - SPEECH DISORDER [None]
  - SWELLING FACE [None]
  - VISION BLURRED [None]
  - WEIGHT DECREASED [None]
